FAERS Safety Report 7131621-3 (Version None)
Quarter: 2010Q4

REPORT INFORMATION
  Report Type: 
  Country: None (occurrence: None)
  Receive Date: 20101201
  Receipt Date: 20101124
  Transmission Date: 20110411
  Serious: Yes (Other)
  Sender: FDA-Public Use
  Company Number: JP-ABBOTT-10P-087-0685771-00

PATIENT
  Age: 28 Year
  Sex: Male
  Weight: 112 kg

DRUGS (5)
  1. SEVOFLURANE [Suspect]
     Indication: BRONCHOSPASM
     Route: 055
  2. PROPOFOL [Concomitant]
     Indication: INDUCTION AND MAINTENANCE OF ANAESTHESIA
     Route: 065
  3. ROCURONIUM BROMIDE [Concomitant]
     Indication: INDUCTION OF ANAESTHESIA
     Route: 065
  4. FENTANYL [Concomitant]
     Indication: INDUCTION OF ANAESTHESIA
     Route: 065
  5. AMINOPHYLLINE HYDRATE [Concomitant]
     Indication: BRONCHOSPASM
     Route: 065

REACTIONS (2)
  - BLOOD PRESSURE DECREASED [None]
  - CARDIAC FAILURE [None]
